FAERS Safety Report 7380957-X (Version None)
Quarter: 2011Q1

REPORT INFORMATION
  Report Type: 
  Country: None (occurrence: None)
  Receive Date: 20110325
  Receipt Date: 20110325
  Transmission Date: 20110831
  Serious: Yes (Hospitalization)
  Sender: FDA-Public Use
  Company Number: None

PATIENT
  Age: 91 Year
  Sex: Female
  Weight: 57 kg

DRUGS (8)
  1. PLAVIX [Suspect]
     Indication: CORONARY ARTERY DISEASE
     Dosage: 75MG DAILY PO CHRONIC
     Route: 048
  2. ASPIRIN [Suspect]
     Indication: CORONARY ARTERY DISEASE
     Dosage: 81MG DAILY PO CHRONIC
     Route: 048
  3. LISINOPRIL [Concomitant]
  4. LASIX [Concomitant]
  5. ARICEPT [Concomitant]
  6. PRAVACHOL [Concomitant]
  7. CARVEDILOL [Concomitant]
  8. SPIRONOLACTONE [Concomitant]

REACTIONS (2)
  - EPISTAXIS [None]
  - HYPERKALAEMIA [None]
